FAERS Safety Report 5487926-5 (Version None)
Quarter: 2007Q3

REPORT INFORMATION
  Report Type: 
  Country: None (occurrence: None)
  Receive Date: 20070925
  Receipt Date: 20070725
  Transmission Date: 20080115
  Serious: No
  Sender: FDA-Public Use
  Company Number: 2007US001449

PATIENT
  Age: 83 Year
  Sex: Male

DRUGS (11)
  1. VESICARE [Suspect]
     Indication: POLLAKIURIA
     Dosage: UID/QD, ORAL
     Route: 048
     Dates: start: 20061123, end: 20070101
  2. LIPITOR [Concomitant]
  3. COUMADIN [Concomitant]
  4. ATENOLOL [Concomitant]
  5. LEVOTHYROXINE SODIUM [Concomitant]
  6. LISINOPRIL (LISINOPRIL DIHYDRATE) [Concomitant]
  7. ASPIRIN [Concomitant]
  8. POTASSIUM (POTASSIUM CHLORIDE) [Concomitant]
  9. CALCIUM (ASCORBIC ACID) [Concomitant]
  10. MULTIVITAMIN [Concomitant]
  11. CITALOPRAM (CITALOPRAM HYDROCHLORIDE) [Concomitant]

REACTIONS (6)
  - DIZZINESS [None]
  - DRY MOUTH [None]
  - EYE IRRITATION [None]
  - POLLAKIURIA [None]
  - THIRST [None]
  - UNEVALUABLE EVENT [None]
